FAERS Safety Report 21704853 (Version 2)
Quarter: 2023Q1

REPORT INFORMATION
  Report Type: Report from Study
  Country: US (occurrence: None)
  Receive Date: 20221209
  Receipt Date: 20230110
  Transmission Date: 20230417
  Serious: Yes (Life-Threatening, Hospitalization)
  Sender: FDA-Public Use
  Company Number: US-ROCHE-2533457

PATIENT
  Age: 61 Year
  Sex: Male
  Weight: 70.8 kg

DRUGS (3)
  1. OBINUTUZUMAB [Suspect]
     Active Substance: OBINUTUZUMAB
     Indication: Chronic lymphocytic leukaemia
     Dosage: ON 06/JUN/2019, HE RECEIVED RECENT DOSE OF OBINUTUZUMAB.?100MG IV ON DAY1,CYCLE 1900MG IV ON DAY 2,C
     Route: 042
     Dates: start: 20190523
  2. IBRUTINIB [Suspect]
     Active Substance: IBRUTINIB
     Indication: Chronic lymphocytic leukaemia
     Dosage: ON DAYS 1 28, CYCLES 1 19?ON 23/JUN/2019, HE RECEIVED RECENT DOSE OF IBRUTINIB.
     Route: 048
     Dates: start: 20190523
  3. VENETOCLAX [Suspect]
     Active Substance: VENETOCLAX
     Indication: Chronic lymphocytic leukaemia
     Dosage: 20 MG PO QD DAYS1- 7CYCLE 350MG P O QD DAYS 8-14,CYCLE 3 100MG PO QD DAYS 15-21,CYCLE 3 200MG PO QD
     Route: 048
     Dates: start: 20190523

REACTIONS (3)
  - Infusion related reaction [Recovered/Resolved]
  - Febrile neutropenia [Recovered/Resolved]
  - Sepsis [Recovered/Resolved]

NARRATIVE: CASE EVENT DATE: 20190623
